FAERS Safety Report 8282808-8 (Version None)
Quarter: 2012Q2

REPORT INFORMATION
  Report Type: 
  Country: None (occurrence: None)
  Receive Date: 20120410
  Receipt Date: 20120329
  Transmission Date: 20120825
  Serious: Yes (Life-Threatening, Hospitalization)
  Sender: FDA-Public Use
  Company Number: 2006-03279

PATIENT
  Age: 76 Year
  Sex: Female
  Weight: 65 kg

DRUGS (11)
  1. PREDNISONE TAB [Concomitant]
  2. ZOLEDRONIC ACID [Concomitant]
  3. MS CONTIN [Concomitant]
  4. VELCADE [Suspect]
     Indication: MULTIPLE MYELOMA
     Dosage: 2.20 MG, INTRAVENOUS
     Route: 042
     Dates: start: 20061211, end: 20070111
  5. DEXAMETHASONE TAB [Suspect]
     Indication: MULTIPLE MYELOMA
     Dosage: 20 MG, ORAL
     Route: 048
     Dates: start: 20061211, end: 20070111
  6. OMEPRAZOLE [Concomitant]
  7. METOCLOPRAMIDE [Concomitant]
  8. HYDROCORTONE [Concomitant]
  9. FUROSEMIDE [Concomitant]
  10. PROMETHAZINE HYDROCHLORIDE [Concomitant]
  11. AMOXICILLIN [Concomitant]

REACTIONS (20)
  - DYSPNOEA [None]
  - VOMITING [None]
  - CARDIAC FAILURE [None]
  - TUMOUR LYSIS SYNDROME [None]
  - RENAL FAILURE CHRONIC [None]
  - CONSTIPATION [None]
  - NAUSEA [None]
  - LOWER RESPIRATORY TRACT INFECTION [None]
  - MUSCULAR WEAKNESS [None]
  - DIARRHOEA [None]
  - CONFUSIONAL STATE [None]
  - MYOCARDIAL ISCHAEMIA [None]
  - MUCOSAL INFLAMMATION [None]
  - FATIGUE [None]
  - CONDITION AGGRAVATED [None]
  - NEURALGIA [None]
  - ATRIAL FIBRILLATION [None]
  - SINUS TACHYCARDIA [None]
  - MOBILITY DECREASED [None]
  - RESPIRATORY TRACT INFECTION [None]
